FAERS Safety Report 13686673 (Version 2)
Quarter: 2019Q4

REPORT INFORMATION
  Report Type: Spontaneous
  Country: US (occurrence: US)
  Receive Date: 20170623
  Receipt Date: 20191124
  Transmission Date: 20200122
  Serious: Yes (Death, Life-Threatening, Hospitalization, Other)
  Sender: FDA-Public Use
  Company Number: US-B.I. PHARMACEUTICALS,INC./RIDGEFIELD-2017-BI-035293

PATIENT
  Sex: Male

DRUGS (2)
  1. PRADAXA [Suspect]
     Active Substance: DABIGATRAN ETEXILATE MESYLATE
     Indication: ATRIAL FIBRILLATION
     Route: 048
     Dates: start: 20151023
  2. PRADAXA [Suspect]
     Active Substance: DABIGATRAN ETEXILATE MESYLATE
     Route: 065

REACTIONS (13)
  - Dyspnoea [Unknown]
  - Dyspnoea [Unknown]
  - Cardiogenic shock [Fatal]
  - Hypovolaemic shock [Fatal]
  - Dyspnoea [Unknown]
  - Epistaxis [Unknown]
  - Epistaxis [Unknown]
  - Anaemia [Unknown]
  - Epistaxis [Unknown]
  - Gastrointestinal haemorrhage [Fatal]
  - Acute respiratory failure [Fatal]
  - Hypotension [Fatal]
  - Injury [Fatal]

NARRATIVE: CASE EVENT DATE: 20161019
